FAERS Safety Report 16309497 (Version 1)
Quarter: 2019Q2

REPORT INFORMATION
  Report Type: Spontaneous
  Country: GB (occurrence: GB)
  Receive Date: 20190514
  Receipt Date: 20190514
  Transmission Date: 20190711
  Serious: Yes (Disabling, Other)
  Sender: FDA-Public Use
  Company Number: GB-US WORLDMEDS, LLC-E2B_00002979

PATIENT
  Age: 82 Year
  Sex: Female
  Weight: 50 kg

DRUGS (13)
  1. TRIMETHOPRIM. [Concomitant]
     Active Substance: TRIMETHOPRIM
     Dates: start: 20190211, end: 20190321
  2. LANSOPRAZOLE. [Concomitant]
     Active Substance: LANSOPRAZOLE
     Dates: start: 20181011
  3. VAGIFEM [Concomitant]
     Active Substance: ESTRADIOL
     Route: 067
     Dates: start: 20180614
  4. SINEMET [Concomitant]
     Active Substance: CARBIDOPA\LEVODOPA
     Dosage: TAKE  2 AT 9AM , 2 AT 12PM , THEN ONE AT  3PM,6... ()
     Dates: start: 20181011
  5. ACETYLSALICYLIC ACID [Concomitant]
     Active Substance: ASPIRIN
     Dates: start: 20181011
  6. ADCAL (CALCIUM CARBONATE) [Concomitant]
     Active Substance: CALCIUM CARBONATE
     Dates: start: 20181031
  7. NITROFURANTOIN. [Concomitant]
     Active Substance: NITROFURANTOIN
     Dosage: AT NIGHT
     Dates: start: 20190319
  8. PARACETAMOL [Concomitant]
     Active Substance: ACETAMINOPHEN
     Dosage: ONE TO TWO TO BE TAKEN EVERY FOUR TO SI... ()
     Dates: start: 20181011
  9. SAFINAMIDE [Suspect]
     Active Substance: SAFINAMIDE
     Indication: PRODUCT USED FOR UNKNOWN INDICATION
     Dates: start: 20190318
  10. PIVMECILLINAM [Concomitant]
     Active Substance: AMDINOCILLIN PIVOXIL
     Dates: start: 20190325
  11. ZEROBASE [Concomitant]
     Active Substance: MINERAL OIL\PARAFFIN
     Indication: DRY SKIN
     Dates: start: 20181004
  12. AVAMYS [Concomitant]
     Active Substance: FLUTICASONE FUROATE
     Dates: start: 20181031
  13. FENBID [Concomitant]
     Active Substance: IBUPROFEN
     Dates: start: 20181011

REACTIONS (2)
  - Eye haematoma [Not Recovered/Not Resolved]
  - Eye pain [Unknown]

NARRATIVE: CASE EVENT DATE: 20190319
